FAERS Safety Report 24680147 (Version 1)
Quarter: 2024Q4

REPORT INFORMATION
  Report Type: Spontaneous
  Country: EG (occurrence: EG)
  Receive Date: 20241129
  Receipt Date: 20241129
  Transmission Date: 20250114
  Serious: Yes (Death, Hospitalization, Other)
  Sender: ASTELLAS
  Company Number: EG-ASTELLAS-2024-AER-021965

PATIENT
  Sex: Male

DRUGS (6)
  1. TACROLIMUS [Suspect]
     Active Substance: TACROLIMUS
     Indication: Exfoliative rash
     Route: 065
  2. TACROLIMUS [Suspect]
     Active Substance: TACROLIMUS
     Indication: Eczema
  3. SIROLIMUS [Concomitant]
     Active Substance: SIROLIMUS
     Indication: Exfoliative rash
     Route: 065
  4. SIROLIMUS [Concomitant]
     Active Substance: SIROLIMUS
     Indication: Eczema
  5. PREDNISONE [Concomitant]
     Active Substance: PREDNISONE
     Indication: Exfoliative rash
     Route: 065
  6. PREDNISONE [Concomitant]
     Active Substance: PREDNISONE
     Indication: Eczema

REACTIONS (9)
  - Diarrhoea [Fatal]
  - Sepsis [Fatal]
  - Skin lesion [Fatal]
  - Condition aggravated [Fatal]
  - Pneumonia klebsiella [Unknown]
  - Staphylococcal infection [Unknown]
  - Ear infection [Unknown]
  - Staphylococcal infection [Unknown]
  - Off label use [Unknown]
